FAERS Safety Report 16933914 (Version 6)
Quarter: 2020Q1

REPORT INFORMATION
  Report Type: Spontaneous
  Country: JP (occurrence: JP)
  Receive Date: 20191018
  Receipt Date: 20200203
  Transmission Date: 20200409
  Serious: Yes (Hospitalization, Other)
  Sender: FDA-Public Use
  Company Number: JP-GLAXOSMITHKLINE-JP2019JPN187159

PATIENT
  Age: 31 Year
  Sex: Female
  Weight: 57 kg

DRUGS (5)
  1. CYMBALTA [Suspect]
     Active Substance: DULOXETINE HYDROCHLORIDE
     Dosage: 1200 MG, SINGLE
     Route: 048
     Dates: start: 20190319, end: 20190319
  2. CYMBALTA [Suspect]
     Active Substance: DULOXETINE HYDROCHLORIDE
     Dosage: 60 MG, 1D
     Route: 048
     Dates: end: 20190319
  3. LAMICTAL [Suspect]
     Active Substance: LAMOTRIGINE
     Indication: BIPOLAR DISORDER
     Dosage: UNK UNK, 1D
     Route: 048
  4. LAMICTAL [Suspect]
     Active Substance: LAMOTRIGINE
     Dosage: 300 MG, QD
     Route: 048
     Dates: end: 20190319
  5. LAMICTAL [Suspect]
     Active Substance: LAMOTRIGINE
     Dosage: 5000 MG, UNK
     Route: 048
     Dates: start: 20190319, end: 20190319

REACTIONS (14)
  - Tachypnoea [Recovered/Resolved]
  - Overdose [Unknown]
  - Serotonin syndrome [Recovered/Resolved]
  - Tonic posturing [Recovered/Resolved]
  - Hyperhidrosis [Recovered/Resolved]
  - Tremor [Recovered/Resolved]
  - Altered state of consciousness [Recovered/Resolved]
  - Sympathicotonia [Recovered/Resolved]
  - Pneumonia aspiration [Recovered/Resolved]
  - Tachycardia [Recovered/Resolved]
  - Metabolic acidosis [Recovered/Resolved]
  - Mydriasis [Recovered/Resolved]
  - Hyperreflexia [Recovered/Resolved]
  - Restlessness [Recovered/Resolved]

NARRATIVE: CASE EVENT DATE: 20190319
